FAERS Safety Report 9451011 (Version 1)
Quarter: 2013Q3

REPORT INFORMATION
  Report Type: Spontaneous
  Country: DE (occurrence: None)
  Receive Date: 20130807
  Receipt Date: 20130807
  Transmission Date: 20140515
  Serious: Yes (Other)
  Sender: FDA-Public Use
  Company Number: AUR-APL-2013-06356

PATIENT
  Age: 1 Day
  Sex: Male
  Weight: 3.13 kg

DRUGS (1)
  1. SERTRALINE (SERTRALINE) [Suspect]
     Indication: DEPRESSION
     Dosage: (50 MG, 1 IN 1 D)
     Route: 063
     Dates: start: 20080612, end: 20080701

REACTIONS (3)
  - Restlessness [None]
  - Frequent bowel movements [None]
  - Exposure during breast feeding [None]
